FAERS Safety Report 19678632 (Version 1)
Quarter: 2021Q3

REPORT INFORMATION
  Report Type: Spontaneous
  Country: US (occurrence: US)
  Receive Date: 20210809
  Receipt Date: 20210809
  Transmission Date: 20211014
  Serious: Yes (Other)
  Sender: FDA-Public Use
  Company Number: None

PATIENT
  Age: 46 Year
  Sex: Male

DRUGS (8)
  1. ALOXI [Concomitant]
     Active Substance: PALONOSETRON HYDROCHLORIDE
     Dates: start: 20210730
  2. ATROPINE. [Concomitant]
     Active Substance: ATROPINE
     Dates: start: 20210730
  3. DEXAMETHASONE. [Concomitant]
     Active Substance: DEXAMETHASONE
     Dates: start: 20210730
  4. FLUOROURACIL. [Concomitant]
     Active Substance: FLUOROURACIL
     Dates: start: 20210730
  5. EMEND [Concomitant]
     Active Substance: APREPITANT
     Dates: start: 20210730
  6. OXALIPLATIN. [Concomitant]
     Active Substance: OXALIPLATIN
     Dates: start: 20210730
  7. LEUCOVORIN. [Concomitant]
     Active Substance: LEUCOVORIN
     Dates: start: 20210730
  8. IRINOTECAN [Suspect]
     Active Substance: IRINOTECAN
     Indication: ADENOCARCINOMA PANCREAS
     Dates: start: 20210730

REACTIONS (9)
  - Dysarthria [None]
  - Dyspnoea [None]
  - Angioedema [None]
  - Chest pain [None]
  - Headache [None]
  - Visual impairment [None]
  - Dizziness [None]
  - Dysphagia [None]
  - Pharyngeal paraesthesia [None]

NARRATIVE: CASE EVENT DATE: 20210730
